FAERS Safety Report 13899833 (Version 3)
Quarter: 2020Q1

REPORT INFORMATION
  Report Type: Report from Study
  Country: CO (occurrence: CO)
  Receive Date: 20170823
  Receipt Date: 20200106
  Transmission Date: 20200409
  Serious: Yes (Other)
  Sender: FDA-Public Use
  Company Number: CO-REGENERON PHARMACEUTICALS, INC.-2017-20567

PATIENT

DRUGS (15)
  1. EYLEA [Suspect]
     Active Substance: AFLIBERCEPT
     Dosage: 2 MG, ONCE, LEFT EYE
     Route: 031
     Dates: start: 20150718, end: 20150718
  2. EYLEA [Suspect]
     Active Substance: AFLIBERCEPT
     Dosage: 2 MG, ONCE, LEFT EYE
     Route: 031
     Dates: start: 20171026, end: 20171026
  3. EYLEA [Suspect]
     Active Substance: AFLIBERCEPT
     Dosage: 2 MG, ONCE, LEFT EYE
     Route: 031
     Dates: start: 20140918, end: 20140918
  4. EYLEA [Suspect]
     Active Substance: AFLIBERCEPT
     Dosage: 2 MG, ONCE, TOTAL OF 21 INJECTIONS RECEIVED
     Route: 031
     Dates: start: 20191220
  5. EYLEA [Suspect]
     Active Substance: AFLIBERCEPT
     Dosage: 2 MG, ONCE, LEFT EYE
     Route: 031
     Dates: start: 20150318, end: 20150318
  6. EYLEA [Suspect]
     Active Substance: AFLIBERCEPT
     Dosage: 2 MG, ONCE, LEFT EYE
     Route: 031
     Dates: start: 20141118, end: 20141118
  7. EYLEA [Suspect]
     Active Substance: AFLIBERCEPT
     Dosage: 2 MG, ONCE, LEFT EYE
     Route: 031
     Dates: start: 20151118, end: 20151118
  8. EYLEA [Suspect]
     Active Substance: AFLIBERCEPT
     Dosage: 2 MG, ONCE, LEFT EYE
     Route: 031
     Dates: start: 20150918, end: 20150918
  9. EYLEA [Suspect]
     Active Substance: AFLIBERCEPT
     Dosage: 2 MG, ONCE, LEFT EYE
     Route: 031
     Dates: start: 20161026, end: 20161026
  10. EYLEA [Suspect]
     Active Substance: AFLIBERCEPT
     Dosage: 2 MG, ONCE, LEFT EYE (LAST DOSE PRIOR TO EVENT)
     Route: 031
     Dates: start: 20170721, end: 20170721
  11. EYLEA [Suspect]
     Active Substance: AFLIBERCEPT
     Dosage: 2 MG, ONCE, LEFT EYE
     Route: 031
     Dates: start: 20150518, end: 20150518
  12. EYLEA [Suspect]
     Active Substance: AFLIBERCEPT
     Dosage: 2 MG, ONCE, LEFT EYE
     Route: 031
     Dates: start: 20160118, end: 20160118
  13. EYLEA [Suspect]
     Active Substance: AFLIBERCEPT
     Indication: AGE-RELATED MACULAR DEGENERATION
     Dosage: 2 MG, ONCE, LEFT EYE
     Route: 031
     Dates: start: 20140718, end: 20140718
  14. EYLEA [Suspect]
     Active Substance: AFLIBERCEPT
     Dosage: 2 MG, ONCE, LEFT EYE
     Route: 031
     Dates: start: 20140818, end: 20140818
  15. EYLEA [Suspect]
     Active Substance: AFLIBERCEPT
     Dosage: 2 MG, ONCE, LEFT EYE
     Route: 031
     Dates: start: 20150118, end: 20150118

REACTIONS (2)
  - Blindness transient [Recovered/Resolved]
  - Inappropriate schedule of product administration [Unknown]

NARRATIVE: CASE EVENT DATE: 20170721
